FAERS Safety Report 17343291 (Version 1)
Quarter: 2020Q1

REPORT INFORMATION
  Report Type: Spontaneous
  Country: US (occurrence: US)
  Receive Date: 20200129
  Receipt Date: 20200129
  Transmission Date: 20200409
  Serious: No
  Sender: FDA-Public Use
  Company Number: US-ALLERGAN-1908202US

PATIENT
  Age: 35 Year

DRUGS (1)
  1. BOTOX [Suspect]
     Active Substance: ONABOTULINUMTOXINA
     Indication: PRODUCT USED FOR UNKNOWN INDICATION
     Dosage: UNK, SINGLE
     Route: 030
     Dates: start: 201610, end: 201610

REACTIONS (10)
  - Decreased appetite [Unknown]
  - Influenza like illness [Unknown]
  - Panic attack [Unknown]
  - Fatigue [Unknown]
  - Anxiety [Unknown]
  - Nervous system disorder [Unknown]
  - Nausea [Unknown]
  - Eye movement disorder [Unknown]
  - Vertigo [Unknown]
  - Paraesthesia [Unknown]

NARRATIVE: CASE EVENT DATE: 201610
